FAERS Safety Report 7451744-9 (Version None)
Quarter: 2011Q2

REPORT INFORMATION
  Report Type: 
  Country: None (occurrence: None)
  Receive Date: 20110502
  Receipt Date: 20100713
  Transmission Date: 20111010
  Serious: No
  Sender: FDA-Public Use
  Company Number: US-ASTRAZENECA-2010SE32641

PATIENT
  Sex: Female
  Weight: 150 kg

DRUGS (5)
  1. CALCIUM [Concomitant]
  2. ALLEGRA [Concomitant]
  3. PRAVASTATIN [Concomitant]
  4. VITAMIN D [Concomitant]
  5. NEXIUM [Suspect]
     Indication: GASTROOESOPHAGEAL REFLUX DISEASE
     Route: 048
     Dates: start: 20090201

REACTIONS (3)
  - ARTHRITIS [None]
  - VITAMIN D DEFICIENCY [None]
  - JOINT SWELLING [None]
